FAERS Safety Report 10528868 (Version 1)
Quarter: 2014Q4

REPORT INFORMATION
  Report Type: Spontaneous
  Country: IT (occurrence: IT)
  Receive Date: 20141020
  Receipt Date: 20141020
  Transmission Date: 20150528
  Serious: Yes (Hospitalization)
  Sender: FDA-Public Use
  Company Number: PHHY2014IT133268

PATIENT
  Age: 36 Year
  Sex: Male

DRUGS (1)
  1. TOPIRAMATE. [Suspect]
     Active Substance: TOPIRAMATE
     Indication: EPILEPSY
     Dosage: 200 MG, QD
     Route: 065

REACTIONS (20)
  - Coma [Recovering/Resolving]
  - Platelet count decreased [Recovering/Resolving]
  - Heat stroke [Recovering/Resolving]
  - Metabolic acidosis [Recovering/Resolving]
  - Nystagmus [Recovering/Resolving]
  - Hypertension [Recovering/Resolving]
  - Quadriparesis [Recovering/Resolving]
  - Cerebellar ataxia [Recovering/Resolving]
  - Blood pressure increased [Recovering/Resolving]
  - Muscle rigidity [Recovering/Resolving]
  - Cerebellar atrophy [Recovering/Resolving]
  - Body temperature increased [Recovering/Resolving]
  - Hyperkalaemia [Recovering/Resolving]
  - Depressed level of consciousness [Recovering/Resolving]
  - Heart rate increased [Recovering/Resolving]
  - Tachycardia [Recovering/Resolving]
  - Tachypnoea [Recovering/Resolving]
  - Eye movement disorder [Recovering/Resolving]
  - Myoclonus [Recovering/Resolving]
  - Hypertonia [Recovering/Resolving]
